FAERS Safety Report 9767644 (Version 2)
Quarter: 2014Q1

REPORT INFORMATION
  Report Type: Spontaneous
  Country: FR (occurrence: FR)
  Receive Date: 20131217
  Receipt Date: 20140103
  Transmission Date: 20141002
  Serious: Yes (Hospitalization)
  Sender: FDA-Public Use
  Company Number: FR-ASTELLAS-2013EU011077

PATIENT
  Sex: Male

DRUGS (2)
  1. ADVAGRAF [Suspect]
     Dosage: 1 MG, UID/QD
     Route: 048
     Dates: start: 201312
  2. ADVAGRAF [Suspect]
     Dosage: 0.5 MG, UID/QD
     Route: 048
     Dates: start: 201312

REACTIONS (1)
  - Investigation [Unknown]
